FAERS Safety Report 5087268-6 (Version None)
Quarter: 2006Q3

REPORT INFORMATION
  Report Type: 
  Country: None (occurrence: None)
  Receive Date: 20060801
  Receipt Date: 20050816
  Transmission Date: 20061208
  Serious: Yes (Hospitalization)
  Sender: FDA-Public Use
  Company Number: OMPQ-PR-0508S-1194

PATIENT
  Age: 76 Year
  Sex: Female

DRUGS (1)
  1. OMNIPAQUE 140 [Suspect]
     Indication: CHEST PAIN
     Dosage: 36 ML, SINGLE DOSE, CORONARY
     Dates: start: 20050811, end: 20050811

REACTIONS (1)
  - CEREBROVASCULAR ACCIDENT [None]
